FAERS Safety Report 9229859 (Version 1)
Quarter: 2013Q2

REPORT INFORMATION
  Report Type: Spontaneous
  Country: US (occurrence: None)
  Receive Date: 20130412
  Receipt Date: 20130412
  Transmission Date: 20140414
  Serious: Yes (Death)
  Sender: FDA-Public Use
  Company Number: None

PATIENT
  Age: 81 Year
  Sex: Female

DRUGS (2)
  1. ARANESP [Suspect]
     Indication: WHITE BLOOD CELL DISORDER
     Route: 058
     Dates: start: 20100216, end: 20130410
  2. NEUPOGEN [Suspect]
     Route: 058
     Dates: start: 20100216, end: 20130410

REACTIONS (1)
  - Death [None]
